FAERS Safety Report 6656340-9 (Version None)
Quarter: 2010Q1

REPORT INFORMATION
  Report Type: 
  Country: None (occurrence: None)
  Receive Date: 20100329
  Receipt Date: 20100317
  Transmission Date: 20100710
  Serious: Yes (Hospitalization)
  Sender: FDA-Public Use
  Company Number: CA-ABBOTT-10P-028-0633115-00

PATIENT
  Sex: Male
  Weight: 81.72 kg

DRUGS (7)
  1. HUMIRA [Suspect]
     Indication: PSORIATIC ARTHROPATHY
     Route: 058
     Dates: start: 20090918
  2. ATIVAN [Suspect]
     Indication: ANXIETY
     Dosage: ONE WHOLE BOTTLE
     Dates: start: 20100316, end: 20100316
  3. ATIVAN [Suspect]
     Dosage: 1-2 MILLIGRAMS AS REQUIRED
     Route: 048
     Dates: start: 20070101
  4. DESYREL [Suspect]
     Indication: DEPRESSION
     Dosage: ONE WHOLE BOTTLE
     Dates: start: 20100316, end: 20100316
  5. DESYREL [Suspect]
     Dosage: 1-2 TABLETS DAILY
     Route: 048
     Dates: start: 20070101
  6. PANTOPRAZOLE [Concomitant]
     Indication: GASTRIC DISORDER
     Route: 048
     Dates: start: 20080101
  7. CIPRALEX [Concomitant]
     Indication: DRUG USE FOR UNKNOWN INDICATION
     Dosage: 1-2 TAB
     Route: 048

REACTIONS (3)
  - LOSS OF CONSCIOUSNESS [None]
  - SUICIDAL IDEATION [None]
  - SUICIDE ATTEMPT [None]
